FAERS Safety Report 20471078 (Version 1)
Quarter: 2022Q1

REPORT INFORMATION
  Report Type: Report from Study
  Country: US (occurrence: US)
  Receive Date: 20220214
  Receipt Date: 20220214
  Transmission Date: 20220423
  Serious: Yes (Hospitalization, Other)
  Sender: FDA-Public Use
  Company Number: US-GILEAD-2022-0569412

PATIENT
  Sex: Female

DRUGS (11)
  1. AZTREONAM LYSINE [Suspect]
     Active Substance: AZTREONAM LYSINE
     Indication: Cystic fibrosis
     Dosage: 75 MG, TID FOR 28 DAYS EVERY OTHER MONTH
     Route: 055
  2. SINGULAIR [Concomitant]
     Active Substance: MONTELUKAST SODIUM
  3. CELEBREX [Concomitant]
     Active Substance: CELECOXIB
  4. ORIAHNN [Concomitant]
     Active Substance: ELAGOLIX SODIUM\ESTRADIOL\NORETHINDRONE
  5. FLONASE ALLERGY RELIEF [Concomitant]
     Active Substance: FLUTICASONE PROPIONATE
  6. LORATADINE [Concomitant]
     Active Substance: LORATADINE
  7. VITAMINS NOS [Concomitant]
     Active Substance: VITAMINS
  8. AZITHROMYCIN [Concomitant]
     Active Substance: AZITHROMYCIN
  9. VITAMIN D3 [Concomitant]
     Active Substance: CHOLECALCIFEROL
  10. METHOTREXATE [Concomitant]
     Active Substance: METHOTREXATE
  11. SODIUM CHLORIDE [Concomitant]
     Active Substance: SODIUM CHLORIDE

REACTIONS (1)
  - Cystic fibrosis [Unknown]
